FAERS Safety Report 16637537 (Version 1)
Quarter: 2019Q3

REPORT INFORMATION
  Report Type: Report from Study
  Country: US (occurrence: US)
  Receive Date: 20190726
  Receipt Date: 20190726
  Transmission Date: 20191004
  Serious: Yes (Other)
  Sender: FDA-Public Use
  Company Number: US-BIOGEN-2019BI00766264

PATIENT
  Sex: Male

DRUGS (2)
  1. TECFIDERA [Suspect]
     Active Substance: DIMETHYL FUMARATE
     Indication: MULTIPLE SCLEROSIS
     Dosage: MAINTENANCE DOSE
     Route: 048
     Dates: start: 20180509
  2. TECFIDERA [Suspect]
     Active Substance: DIMETHYL FUMARATE
     Dosage: STARTING DOSE, MORE THAN 28 DAYS
     Route: 048

REACTIONS (5)
  - Morbid thoughts [Not Recovered/Not Resolved]
  - Brain injury [Not Recovered/Not Resolved]
  - Tachycardia [Recovered/Resolved]
  - Hypotension [Unknown]
  - Periarthritis [Unknown]
